FAERS Safety Report 10278574 (Version 1)
Quarter: 2014Q3

REPORT INFORMATION
  Report Type: Spontaneous
  Country: GB (occurrence: GB)
  Receive Date: 20140704
  Receipt Date: 20140704
  Transmission Date: 20150326
  Serious: Yes (Other)
  Sender: FDA-Public Use
  Company Number: GB-BRISTOL-MYERS SQUIBB COMPANY-21101308

PATIENT
  Age: 40 Year
  Sex: Female

DRUGS (17)
  1. ORAMORPH SR SUSTAINED RELEASE [Concomitant]
     Active Substance: MORPHINE SULFATE
     Dates: start: 20140508
  2. PARACETAMOL [Concomitant]
     Active Substance: ACETAMINOPHEN
     Dates: start: 20140508
  3. LEVEMIR [Concomitant]
     Active Substance: INSULIN DETEMIR
     Dates: start: 20140508
  4. METFORMIN [Concomitant]
     Active Substance: METFORMIN HYDROCHLORIDE
     Dates: start: 20140508
  5. FORXIGA [Suspect]
     Active Substance: DAPAGLIFLOZIN
     Indication: TYPE 2 DIABETES MELLITUS
     Route: 048
     Dates: start: 20140510, end: 20140511
  6. CYCLIZINE [Concomitant]
     Active Substance: CYCLIZINE
     Dates: start: 20140508
  7. CYMBALTA [Concomitant]
     Active Substance: DULOXETINE HYDROCHLORIDE
     Dates: start: 20140508
  8. OMEPRAZOLE. [Concomitant]
     Active Substance: OMEPRAZOLE
     Dates: start: 20140508
  9. SALAMOL [Concomitant]
     Active Substance: ALBUTEROL
     Route: 055
     Dates: start: 20140508
  10. BEZAFIBRATE [Concomitant]
     Active Substance: BEZAFIBRATE
     Dosage: TRADE NAME: BEZALIP MONO
     Dates: start: 20140508
  11. SIMVASTATIN. [Concomitant]
     Active Substance: SIMVASTATIN
     Dates: start: 20140508
  12. CITALOPRAM [Concomitant]
     Active Substance: CITALOPRAM HYDROBROMIDE
     Dates: start: 20140508
  13. FUSIDIC ACID [Concomitant]
     Active Substance: FUSIDIC ACID
     Dosage: STRENGTH: 2%
     Dates: start: 20140508
  14. NOVORAPID [Concomitant]
     Active Substance: INSULIN ASPART
     Dates: start: 20140508
  15. ZOMORPH [Concomitant]
     Active Substance: MORPHINE SULFATE
     Dates: start: 20140509
  16. BENDROFLUMETHIAZIDE [Concomitant]
     Active Substance: BENDROFLUMETHIAZIDE
     Dates: start: 20140508
  17. RAMIPRIL. [Concomitant]
     Active Substance: RAMIPRIL
     Dates: start: 20140508

REACTIONS (5)
  - Eye swelling [Not Recovered/Not Resolved]
  - Inflammation [Not Recovered/Not Resolved]
  - Mouth ulceration [Not Recovered/Not Resolved]
  - Skin exfoliation [Not Recovered/Not Resolved]
  - Swelling face [Not Recovered/Not Resolved]

NARRATIVE: CASE EVENT DATE: 20140511
